FAERS Safety Report 17135613 (Version 2)
Quarter: 2019Q4

REPORT INFORMATION
  Report Type: Spontaneous
  Country: DE (occurrence: DE)
  Receive Date: 20191210
  Receipt Date: 20191216
  Transmission Date: 20200122
  Serious: Yes (Hospitalization)
  Sender: FDA-Public Use
  Company Number: DE-MYLANLABS-2019M1120446

PATIENT
  Age: 88 Year
  Sex: Male

DRUGS (13)
  1. LEVOTHYROXINE SODIUM. [Concomitant]
     Active Substance: LEVOTHYROXINE SODIUM
     Dosage: 25 MG, 1-0-0-0
  2. TAVOR (LORAZEPAM) [Concomitant]
     Active Substance: LORAZEPAM
     Dosage: 0.5 MG, BEDARF
  3. TRENANTONE [Concomitant]
     Active Substance: LEUPROLIDE ACETATE
     Dosage: 11.25 MG, ALLE 12 WOCHEN
     Route: 058
  4. DIGITOXIN [Concomitant]
     Active Substance: DIGITOXIN
     Dosage: 0.07 MG, 1-0-0-0; SO PAUSE
  5. FLUVASTATIN [Concomitant]
     Active Substance: FLUVASTATIN SODIUM
     Dosage: 40 MG, 0-0-1-0
  6. RAMIPRIL. [Concomitant]
     Active Substance: RAMIPRIL
     Dosage: 5 MG, 1-0-1-0
  7. MOVICOL [Concomitant]
     Active Substance: POLYETHYLENE GLYCOL 3350\POTASSIUM CHLORIDE\SODIUM BICARBONATE\SODIUM CHLORIDE
     Dosage: NK MG, 1-0-0-0; MO, MI, FR
  8. ACETYLSALICYLSAEURE [Concomitant]
     Active Substance: ASPIRIN
     Dosage: 100 MG, 1-0-0-0
  9. GLYCERYL TRINITRATE [Suspect]
     Active Substance: NITROGLYCERIN
     Indication: PRODUCT USED FOR UNKNOWN INDICATION
     Dosage: NK MG, 2 HUB AM 09.11.2017
  10. SERTRALINE [Concomitant]
     Active Substance: SERTRALINE HYDROCHLORIDE
     Dosage: 50 MG, 0.5-0-0-0
  11. MIRTAZAPIN [Concomitant]
     Active Substance: MIRTAZAPINE
     Dosage: 30 MG, 0-0-0-1
  12. METAMIZOL                          /06276701/ [Concomitant]
     Active Substance: METAMIZOLE
     Dosage: 500 MG, BEDARF
  13. ZOPICLON [Concomitant]
     Active Substance: ZOPICLONE
     Dosage: 7.5 MG, BEDARF

REACTIONS (4)
  - General physical health deterioration [Unknown]
  - Aphasia [Unknown]
  - Disturbance in attention [Unknown]
  - Disorientation [Unknown]
